FAERS Safety Report 7657376-1 (Version None)
Quarter: 2011Q3

REPORT INFORMATION
  Report Type: 
  Country: None (occurrence: None)
  Receive Date: 20110804
  Receipt Date: 20110801
  Transmission Date: 20111222
  Serious: Yes (Other)
  Sender: FDA-Public Use
  Company Number: US-SANOFI-AVENTIS-2011SA049272

PATIENT
  Age: 81 Year
  Sex: Female

DRUGS (2)
  1. ANTIHYPERTENSIVES [Concomitant]
  2. PLAVIX [Suspect]
     Route: 065
     Dates: start: 20040101

REACTIONS (5)
  - ROAD TRAFFIC ACCIDENT [None]
  - HAEMORRHAGE [None]
  - ASTHENIA [None]
  - FATIGUE [None]
  - UPPER LIMB FRACTURE [None]
